FAERS Safety Report 5179609-6 (Version None)
Quarter: 2006Q4

REPORT INFORMATION
  Report Type: 
  Country: None (occurrence: None)
  Receive Date: 20061211
  Receipt Date: 20061127
  Transmission Date: 20070319
  Serious: Yes (Other)
  Sender: FDA-Public Use
  Company Number: 2006130358

PATIENT
  Age: 52 Year
  Sex: Female
  Weight: 65.7716 kg

DRUGS (11)
  1. CHANTIX [Suspect]
     Indication: SMOKING CESSATION THERAPY
     Dates: start: 20060101, end: 20061001
  2. WELLBUTRIN [Suspect]
     Indication: DEPRESSION
     Dosage: 150 MG (150 MG, 1 IN 1 D)
  3. MIRAPEX [Suspect]
     Indication: RESTLESS LEGS SYNDROME
     Dosage: (1 D)
  4. LEXAPRO [Concomitant]
  5. AVALIDE [Concomitant]
  6. ROZEREM [Concomitant]
  7. ALL OTHER THERAPEUTIC PRODUCTS [Concomitant]
  8. PERCOCET [Concomitant]
  9. VICODIN [Concomitant]
  10. VALIUM [Concomitant]
  11. VITAMIN CAP [Concomitant]

REACTIONS (9)
  - ABNORMAL BEHAVIOUR [None]
  - ANHEDONIA [None]
  - CONFUSIONAL STATE [None]
  - DELUSION [None]
  - HALLUCINATION, VISUAL [None]
  - ORAL INTAKE REDUCED [None]
  - STRESS [None]
  - THERAPY NON-RESPONDER [None]
  - WEIGHT DECREASED [None]
